FAERS Safety Report 12649124 (Version 2)
Quarter: 2016Q3

REPORT INFORMATION
  Report Type: Spontaneous
  Country: BR (occurrence: BR)
  Receive Date: 20160812
  Receipt Date: 20160828
  Transmission Date: 20161109
  Serious: Yes (Other)
  Sender: FDA-Public Use
  Company Number: BR-ELI_LILLY_AND_COMPANY-BR201607008972

PATIENT
  Sex: Female
  Weight: 68 kg

DRUGS (3)
  1. GLIFAGE [Concomitant]
     Active Substance: METFORMIN HYDROCHLORIDE
     Indication: PRODUCT USED FOR UNKNOWN INDICATION
     Dosage: UNK, UNKNOWN
     Route: 065
  2. HUMALOG [Suspect]
     Active Substance: INSULIN LISPRO
     Indication: DIABETES MELLITUS
     Dosage: UNK, PRN
     Route: 058
     Dates: start: 2009
  3. LANTUS [Concomitant]
     Active Substance: INSULIN GLARGINE
     Dosage: UNK, UNKNOWN
     Route: 065

REACTIONS (4)
  - Visual impairment [Unknown]
  - Blood glucose increased [Unknown]
  - Venous occlusion [Unknown]
  - Visual acuity reduced [Unknown]
